FAERS Safety Report 18473680 (Version 1)
Quarter: 2020Q4

REPORT INFORMATION
  Report Type: Spontaneous
  Country: US (occurrence: US)
  Receive Date: 20201105
  Receipt Date: 20201105
  Transmission Date: 20210114
  Serious: Yes (Death)
  Sender: FDA-Public Use
  Company Number: None

PATIENT
  Age: 75 Year
  Sex: Male

DRUGS (1)
  1. TADALAFIL 20MG TAB 60/BO: 20MG [Suspect]
     Active Substance: TADALAFIL
     Indication: PULMONARY ARTERIAL HYPERTENSION
     Route: 048
     Dates: start: 201903, end: 202003

REACTIONS (4)
  - Chronic obstructive pulmonary disease [None]
  - Drug abuse [None]
  - Mental status changes [None]
  - Respiratory failure [None]

NARRATIVE: CASE EVENT DATE: 20200305
